FAERS Safety Report 21654108 (Version 1)
Quarter: 2022Q4

REPORT INFORMATION
  Report Type: Spontaneous
  Country: PL (occurrence: PL)
  Receive Date: 20221129
  Receipt Date: 20221129
  Transmission Date: 20230112
  Serious: Yes (Hospitalization, Other)
  Sender: FDA-Public Use
  Company Number: PL-AMGEN-POLSP2022192781

PATIENT
  Age: 70 Year
  Sex: Male

DRUGS (10)
  1. FILGRASTIM [Suspect]
     Active Substance: FILGRASTIM
     Indication: Product used for unknown indication
     Dosage: UNK
     Route: 065
  2. BEVACIZUMAB [Suspect]
     Active Substance: BEVACIZUMAB
     Indication: Rectosigmoid cancer metastatic
     Dosage: UNK
     Route: 065
     Dates: start: 20210407
  3. PANITUMUMAB [Suspect]
     Active Substance: PANITUMUMAB
     Indication: Rectosigmoid cancer metastatic
     Dosage: 6 MG/KG, Q2W
     Route: 065
     Dates: start: 20220328
  4. NEUROVIT [Concomitant]
     Indication: Product used for unknown indication
     Dosage: 1 DOSAGE FORM, TID (3 X 1 TAB )
     Route: 065
  5. FLUOROURACIL [Concomitant]
     Active Substance: FLUOROURACIL
     Indication: Rectosigmoid cancer metastatic
     Dosage: UNK
     Route: 065
     Dates: start: 20210407
  6. LAMIVUDINE [Concomitant]
     Active Substance: LAMIVUDINE
     Indication: Product used for unknown indication
     Dosage: 1 DOSAGE FORM, QD (1 X 1 TAB)
     Route: 065
  7. METOPROLOL TARTRATE [Concomitant]
     Active Substance: METOPROLOL TARTRATE
     Indication: Product used for unknown indication
     Dosage: 23.75 MG (1/2 TAB. IN THE MORNING)
     Route: 065
  8. LEUCOVORIN [Concomitant]
     Active Substance: LEUCOVORIN
     Indication: Rectosigmoid cancer metastatic
     Dosage: UNK
     Route: 065
     Dates: start: 20210407
  9. OXALIPLATIN [Concomitant]
     Active Substance: OXALIPLATIN
     Indication: Rectosigmoid cancer metastatic
     Dosage: UNK
     Route: 065
     Dates: start: 20210407
  10. SPIRONOLACTONE [Concomitant]
     Active Substance: SPIRONOLACTONE
     Indication: Product used for unknown indication
     Dosage: 25 MG (1 TAB. IN THE MORNING)
     Route: 065

REACTIONS (8)
  - Electrolyte imbalance [Unknown]
  - Diarrhoea [Unknown]
  - Rectosigmoid cancer metastatic [Not Recovered/Not Resolved]
  - Skin exfoliation [Unknown]
  - Paronychia [Unknown]
  - Erythema [Unknown]
  - Dry skin [Unknown]
  - Rash pustular [Unknown]

NARRATIVE: CASE EVENT DATE: 20220101
